FAERS Safety Report 17785413 (Version 1)
Quarter: 2020Q2

REPORT INFORMATION
  Report Type: Spontaneous
  Country: ES (occurrence: ES)
  Receive Date: 20200514
  Receipt Date: 20200514
  Transmission Date: 20200714
  Serious: Yes (Other)
  Sender: FDA-Public Use
  Company Number: ES-TEVA-2020-ES-1232557

PATIENT
  Age: 52 Year
  Sex: Female
  Weight: 74 kg

DRUGS (1)
  1. NEOTIGASON [Suspect]
     Active Substance: ACITRETIN
     Indication: PSORIASIS
     Dosage: 25 MILLIGRAM DAILY; 1 TABLET DAILY
     Route: 048
     Dates: start: 20190329

REACTIONS (4)
  - Lip dry [Not Recovered/Not Resolved]
  - Pruritus [Not Recovered/Not Resolved]
  - Skin exfoliation [Not Recovered/Not Resolved]
  - Madarosis [Not Recovered/Not Resolved]

NARRATIVE: CASE EVENT DATE: 20190701
